FAERS Safety Report 5397558-5 (Version None)
Quarter: 2007Q3

REPORT INFORMATION
  Report Type: 
  Country: None (occurrence: None)
  Receive Date: 20070724
  Receipt Date: 20070724
  Transmission Date: 20080115
  Serious: Yes (Hospitalization)
  Sender: FDA-Public Use
  Company Number: None

PATIENT
  Sex: Male
  Weight: 88 kg

DRUGS (3)
  1. CARBOPLATIN [Suspect]
     Indication: TONSIL CANCER
     Dosage: AUC 6 Q4WKS
     Dates: start: 20070628
  2. TAXOL [Suspect]
     Indication: TONSIL CANCER
     Dosage: 100MG/M2 QWK
     Dates: start: 20070717
  3. CETUXIMAB [Suspect]
     Dosage: 25GM/M2 IV QW
     Route: 042
     Dates: start: 20070717

REACTIONS (5)
  - JAW FRACTURE [None]
  - PROCEDURAL COMPLICATION [None]
  - PYREXIA [None]
  - SINUS DISORDER [None]
  - TOOTH EXTRACTION [None]
